FAERS Safety Report 5108285-3 (Version None)
Quarter: 2006Q3

REPORT INFORMATION
  Report Type: 
  Country: None (occurrence: None)
  Receive Date: 20060919
  Receipt Date: 20060731
  Transmission Date: 20061208
  Serious: No
  Sender: FDA-Public Use
  Company Number: US-BRISTOL-MYERS SQUIBB COMPANY-13460266

PATIENT
  Age: 41 Year
  Sex: Female
  Weight: 122 kg

DRUGS (3)
  1. MEGESTROL ACETATE [Suspect]
     Indication: ENDOMETRIAL SARCOMA
     Dates: start: 20060401
  2. BENICAR [Concomitant]
  3. VITAMINS [Concomitant]

REACTIONS (1)
  - WEIGHT INCREASED [None]
